FAERS Safety Report 4675927-6 (Version None)
Quarter: 2005Q2

REPORT INFORMATION
  Report Type: 
  Country: None (occurrence: None)
  Receive Date: 20050527
  Receipt Date: 20050309
  Transmission Date: 20051028
  Serious: No
  Sender: FDA-Public Use
  Company Number: US-GLAXOSMITHKLINE-A0549011A

PATIENT
  Age: 53 Year
  Sex: Male

DRUGS (3)
  1. WELLBUTRIN XL [Suspect]
     Indication: DEPRESSION
     Dosage: 150MG PER DAY
     Route: 048
     Dates: start: 20050201
  2. EXCEDRIN (MIGRAINE) [Suspect]
     Indication: HEADACHE
  3. CELEBREX [Suspect]
     Indication: ILL-DEFINED DISORDER
     Route: 065

REACTIONS (3)
  - CHEST PAIN [None]
  - HEADACHE [None]
  - STOMACH DISCOMFORT [None]
